FAERS Safety Report 18712415 (Version 2)
Quarter: 2021Q1

REPORT INFORMATION
  Report Type: Spontaneous
  Country: AU (occurrence: AU)
  Receive Date: 20210107
  Receipt Date: 20210209
  Transmission Date: 20210419
  Serious: Yes (Other)
  Sender: FDA-Public Use
  Company Number: AU-LEO PHARMA-334074

PATIENT
  Age: 70 Year
  Sex: Female

DRUGS (2)
  1. PICATO [Suspect]
     Active Substance: INGENOL MEBUTATE
     Indication: ACTINIC KERATOSIS
     Dates: start: 202005, end: 202005
  2. PICATO [Suspect]
     Active Substance: INGENOL MEBUTATE
     Dosage: USED UP TO 3 TIMES OVER 5?6 YEARS

REACTIONS (1)
  - Squamous cell carcinoma [Recovered/Resolved]
